FAERS Safety Report 7876584-8 (Version None)
Quarter: 2011Q4

REPORT INFORMATION
  Report Type: 
  Country: None (occurrence: None)
  Receive Date: 20111031
  Receipt Date: 20111027
  Transmission Date: 20120403
  Serious: Yes (Hospitalization)
  Sender: FDA-Public Use
  Company Number: DE-ABBOTT-11P-062-0851372-00

PATIENT
  Sex: Female

DRUGS (2)
  1. HUMIRA [Suspect]
     Indication: CROHN'S DISEASE
     Route: 058
     Dates: start: 20110701, end: 20110725
  2. NOVALGIN [Concomitant]
     Indication: PAIN

REACTIONS (4)
  - GASTROINTESTINAL INFLAMMATION [None]
  - INTESTINAL CYST [None]
  - ABSCESS [None]
  - SECRETION DISCHARGE [None]
